FAERS Safety Report 6980054-9 (Version None)
Quarter: 2010Q3

REPORT INFORMATION
  Report Type: 
  Country: None (occurrence: None)
  Receive Date: 20100914
  Receipt Date: 20100902
  Transmission Date: 20110219
  Serious: Yes (Hospitalization)
  Sender: FDA-Public Use
  Company Number: JP-PFIZER INC-2010101173

PATIENT
  Age: 71 Year
  Sex: Male
  Weight: 37 kg

DRUGS (3)
  1. DALACIN [Suspect]
     Indication: INFECTION
     Dosage: 600 MG, 2X/DAY
     Route: 042
     Dates: start: 20100414, end: 20100419
  2. FLUNARIN [Suspect]
     Indication: INFECTION
     Dosage: 1 G, 2X/DAY
     Route: 042
     Dates: start: 20100414, end: 20100419
  3. FAMOTIDINE [Suspect]
     Indication: GASTRIC ULCER
     Dosage: 20 MG, 2X/DAY
     Route: 042
     Dates: start: 20100414, end: 20100419

REACTIONS (1)
  - STEVENS-JOHNSON SYNDROME [None]
